FAERS Safety Report 7306822-1 (Version None)
Quarter: 2011Q1

REPORT INFORMATION
  Report Type: 
  Country: None (occurrence: None)
  Receive Date: 20110223
  Receipt Date: 20110218
  Transmission Date: 20110831
  Serious: Yes (Hospitalization)
  Sender: FDA-Public Use
  Company Number: US-SP-2011-00542

PATIENT
  Age: 82 Year
  Sex: Male

DRUGS (2)
  1. CIPRO [Concomitant]
  2. THERACYS [Suspect]
     Indication: BLADDER CANCER
     Route: 043
     Dates: start: 20110131, end: 20110131

REACTIONS (9)
  - DECREASED APPETITE [None]
  - MOBILITY DECREASED [None]
  - TREMOR [None]
  - POLLAKIURIA [None]
  - CHILLS [None]
  - SLUGGISHNESS [None]
  - NIGHT SWEATS [None]
  - PYREXIA [None]
  - BLOOD URINE PRESENT [None]
